FAERS Safety Report 22977445 (Version 8)
Quarter: 2024Q2

REPORT INFORMATION
  Report Type: Spontaneous
  Country: US (occurrence: US)
  Receive Date: 20230925
  Receipt Date: 20240614
  Transmission Date: 20240716
  Serious: Yes (Other)
  Sender: FDA-Public Use
  Company Number: US-PFIZER INC-202300299881

PATIENT
  Age: 83 Year
  Sex: Male
  Weight: 88.45 kg

DRUGS (3)
  1. BOSULIF [Suspect]
     Active Substance: BOSUTINIB MONOHYDRATE
     Indication: Chronic myeloid leukaemia
     Dosage: 400 MG
  2. BOSULIF [Suspect]
     Active Substance: BOSUTINIB MONOHYDRATE
     Dosage: 3 TABLETS (300 MG TOTAL) DAILY WITH FOOD SWALLOW TABLET WHOLE
     Route: 048
  3. BOSULIF [Suspect]
     Active Substance: BOSUTINIB MONOHYDRATE
     Dosage: 2 TABLETS (200 MG TOTAL) DAILY TAKE WITH FOOD. SWALLOW TABLET WHOLE, DO NOT BREAK, CRUSH OR CHEW
     Route: 048

REACTIONS (2)
  - Renal impairment [Unknown]
  - Diarrhoea [Unknown]
